FAERS Safety Report 8947875 (Version 1)
Quarter: 2012Q4

REPORT INFORMATION
  Report Type: Spontaneous
  Country: US (occurrence: None)
  Receive Date: 20121127
  Receipt Date: 20121127
  Transmission Date: 20130627
  Serious: Yes (Hospitalization, Other)
  Sender: FDA-Public Use
  Company Number: ACO_32973_2012

PATIENT
  Age: 66 Year
  Sex: Female

DRUGS (8)
  1. AMPYRA (DALFAMPRIDINE) TABLET, 10MG [Suspect]
     Route: 048
  2. EVISTA (RALOXIFENE HYDROCHLORIDE) [Concomitant]
  3. LYRICA (PREGABALIN) [Concomitant]
  4. SIMVASTATIN (SIMVASTATIN) [Concomitant]
  5. CALCIUM (CALCIUM) [Concomitant]
  6. MULTIVITAMIN (VITAMINS NOS) [Concomitant]
  7. VITAMIN B6 (PYRIDOXINE HYDROCHLORIDE) [Concomitant]
  8. VITAMIN E (TOCOPHERYL ACETATE) [Concomitant]

REACTIONS (4)
  - Femur fracture [None]
  - Blood creatinine decreased [None]
  - Fall [None]
  - Dizziness [None]
